FAERS Safety Report 7112885-9 (Version None)
Quarter: 2010Q4

REPORT INFORMATION
  Report Type: 
  Country: None (occurrence: None)
  Receive Date: 20101119
  Receipt Date: 20100325
  Transmission Date: 20110411
  Serious: No
  Sender: FDA-Public Use
  Company Number: US-BRISTOL-MYERS SQUIBB COMPANY-15042963

PATIENT
  Age: 79 Year
  Sex: Female

DRUGS (2)
  1. AVALIDE [Suspect]
     Indication: BLOOD PRESSURE
     Dosage: 1 DOSAGE FORM = 150MG/12.5MG ONCE DAILY AT NIGHT.THERAPY ONGOING.
  2. UROXATRAL [Suspect]
     Indication: URINARY RETENTION

REACTIONS (3)
  - DIZZINESS [None]
  - FEELING ABNORMAL [None]
  - HYPOTENSION [None]
